FAERS Safety Report 9825654 (Version 1)
Quarter: 2014Q1

REPORT INFORMATION
  Report Type: Spontaneous
  Country: US (occurrence: None)
  Receive Date: 20140115
  Receipt Date: 20140115
  Transmission Date: 20141002
  Serious: Yes (Disabling, Other)
  Sender: FDA-Public Use
  Company Number: None

PATIENT
  Age: 80 Year
  Sex: Male
  Weight: 66.68 kg

DRUGS (3)
  1. AMLODIPINE AND BENAZEPRIL HYDROCHLORIDE [Suspect]
     Indication: HYPERTENSION
     Dosage: 10/20 MG?90 PILLS?1 A DAY ?BY MOUTH WITH WATER
     Route: 048
     Dates: start: 20131222, end: 20140106
  2. WAFARIN [Concomitant]
  3. LATANOPROST [Concomitant]

REACTIONS (7)
  - Asthenia [None]
  - Fatigue [None]
  - Faeces hard [None]
  - Myalgia [None]
  - Neck pain [None]
  - Insomnia [None]
  - Restlessness [None]
